FAERS Safety Report 11145296 (Version 6)
Quarter: 2016Q2

REPORT INFORMATION
  Report Type: Report from Study
  Country: CN (occurrence: CN)
  Receive Date: 20150528
  Receipt Date: 20160503
  Transmission Date: 20160815
  Serious: Yes (Hospitalization)
  Sender: FDA-Public Use
  Company Number: CN-ROCHE-1579211

PATIENT
  Age: 50 Year
  Sex: Male
  Weight: 50 kg

DRUGS (59)
  1. LOPERAMIDE HYDROCHLORIDE. [Concomitant]
     Active Substance: LOPERAMIDE HYDROCHLORIDE
     Dosage: INDICATION:ANTIDIARRHEAL
     Route: 048
     Dates: start: 20150320
  2. COMPOSITE POTASSIUM HYDROGEN PHOSPHATE [Concomitant]
     Route: 042
     Dates: start: 20150511, end: 20150515
  3. LEVOCARNITINE. [Concomitant]
     Active Substance: LEVOCARNITINE
     Dosage: INDICATION:TO PROTECT THE MYOCARDIUM
     Route: 042
     Dates: start: 20150511, end: 20150515
  4. FUROSEMIDE. [Concomitant]
     Active Substance: FUROSEMIDE
     Indication: POLYURIA
     Route: 042
     Dates: start: 20150421, end: 20150425
  5. IRON SUCROSE [Concomitant]
     Active Substance: IRON SUCROSE
     Indication: ANAEMIA
     Route: 042
     Dates: start: 20150423, end: 20150423
  6. MORPHINE HYDROCHLORIDE [Concomitant]
     Active Substance: MORPHINE HYDROCHLORIDE
     Route: 058
     Dates: start: 20150508, end: 20150508
  7. OXYCODONE HYDROCHLORIDE. [Concomitant]
     Active Substance: OXYCODONE HYDROCHLORIDE
     Route: 048
     Dates: start: 20141221, end: 20150427
  8. OXYCODONE HYDROCHLORIDE. [Concomitant]
     Active Substance: OXYCODONE HYDROCHLORIDE
     Route: 048
     Dates: start: 20150509, end: 20150510
  9. IRON SUCROSE [Concomitant]
     Active Substance: IRON SUCROSE
     Route: 042
     Dates: start: 20150425, end: 20150427
  10. POTASSIUM CHLORIDE. [Concomitant]
     Active Substance: POTASSIUM CHLORIDE
     Route: 042
     Dates: start: 20150418, end: 20150418
  11. PIDOTIMOD [Concomitant]
     Active Substance: PIDOTIMOD
     Dosage: INDICATION: ANTI NAUSEA
     Route: 048
     Dates: start: 20150401, end: 20150416
  12. SODIUM CHLORIDE. [Concomitant]
     Active Substance: SODIUM CHLORIDE
     Dosage: SODIUM SUPPLEMENT
     Route: 042
     Dates: start: 20150426, end: 20150427
  13. PERTUZUMAB [Suspect]
     Active Substance: PERTUZUMAB
     Indication: HER-2 POSITIVE GASTRIC CANCER
     Dosage: DATE OF MOST RECENT DOSE PRIOR TO THE EVENT: 30/MAR/2015
     Route: 042
     Dates: start: 20141229, end: 20150330
  14. TRASTUZUMAB [Suspect]
     Active Substance: TRASTUZUMAB
     Indication: HER-2 POSITIVE GASTRIC CANCER
     Dosage: LOADING DOSE
     Route: 042
     Dates: start: 20141229
  15. INTERLEUKIN-11 [Concomitant]
     Dosage: INDICATION: INCREASED PLATELET?RECOMBINANT HUMANINTERLEUKIN-11
     Route: 058
     Dates: start: 20150417, end: 20150424
  16. ALANYL-GLUTAMINE [Concomitant]
     Indication: NUTRITIONAL SUPPLEMENTATION
     Route: 042
     Dates: start: 20150418, end: 20150419
  17. CHYMOTRYPSIN [Concomitant]
     Active Substance: CHYMOTRYPSIN
     Dosage: 4000 U, INDICATION: PROMOTE WOUND HEALING
     Route: 055
     Dates: start: 20150425, end: 20150427
  18. MORPHINE HYDROCHLORIDE [Concomitant]
     Active Substance: MORPHINE HYDROCHLORIDE
     Route: 058
     Dates: start: 20150512, end: 20150512
  19. MORPHINE HYDROCHLORIDE [Concomitant]
     Active Substance: MORPHINE HYDROCHLORIDE
     Dosage: ANALGESIC
     Route: 048
     Dates: start: 20150513, end: 20150521
  20. ESOMEPRAZOLE MAGNESIUM. [Concomitant]
     Active Substance: ESOMEPRAZOLE MAGNESIUM
     Route: 048
     Dates: start: 20150510, end: 20150521
  21. OXYCODONE HYDROCHLORIDE. [Concomitant]
     Active Substance: OXYCODONE HYDROCHLORIDE
     Route: 048
     Dates: start: 20150418, end: 20150419
  22. METOCLOPRAMIDE DIHYDROCHLORIDE [Concomitant]
     Dosage: INDICATION:ANTINAUSEA
     Route: 030
     Dates: start: 20150421, end: 20150421
  23. IRON SUCROSE [Concomitant]
     Active Substance: IRON SUCROSE
     Route: 042
     Dates: start: 20150424, end: 20150424
  24. MOXIFLOXACIN HYDROCHLORIDE. [Concomitant]
     Active Substance: MOXIFLOXACIN HYDROCHLORIDE
     Dosage: INDICATION: ANTIINFECTION
     Route: 042
     Dates: start: 20150510, end: 20150515
  25. OXYCODONE HYDROCHLORIDE. [Concomitant]
     Active Substance: OXYCODONE HYDROCHLORIDE
     Route: 048
     Dates: start: 20141216, end: 20150419
  26. OXYCODONE HYDROCHLORIDE. [Concomitant]
     Active Substance: OXYCODONE HYDROCHLORIDE
     Route: 048
     Dates: start: 20150420, end: 20150427
  27. OXYCODONE HYDROCHLORIDE. [Concomitant]
     Active Substance: OXYCODONE HYDROCHLORIDE
     Route: 048
     Dates: start: 20150507, end: 20150508
  28. OXYCODONE HYDROCHLORIDE. [Concomitant]
     Active Substance: OXYCODONE HYDROCHLORIDE
     Route: 048
     Dates: start: 20150511, end: 20150521
  29. MORPHINE HYDROCHLORIDE [Concomitant]
     Active Substance: MORPHINE HYDROCHLORIDE
     Route: 058
     Dates: start: 20150511, end: 20150511
  30. ALMAGATE [Concomitant]
     Active Substance: ALMAGATE
     Dosage: INDICATION: ACID SUPPRESSION
     Route: 048
     Dates: start: 20150512, end: 20150515
  31. CISPLATIN. [Suspect]
     Active Substance: CISPLATIN
     Indication: HER-2 POSITIVE GASTRIC CANCER
     Dosage: DATE OF MOST RECENT DOSE PRIOR TO THE EVENT: 30/MAR/2015
     Route: 042
     Dates: start: 20141229, end: 20150330
  32. LOPERAMIDE HYDROCHLORIDE. [Concomitant]
     Active Substance: LOPERAMIDE HYDROCHLORIDE
     Dosage: SELECT IF ONGOING=NO
     Route: 048
     Dates: start: 20150418, end: 20150427
  33. POTASSIUM ASPARTATE [Concomitant]
     Active Substance: POTASSIUM ASPARTATE
     Indication: BLOOD ELECTROLYTES
     Dosage: INDICATION: ELECTROLYTES
     Route: 042
     Dates: start: 20150418, end: 20150424
  34. AMINO ACID [Concomitant]
     Route: 042
     Dates: start: 20150420, end: 20150422
  35. TRIGLYCERIDES [Concomitant]
     Indication: NUTRITIONAL SUPPLEMENTATION
     Route: 042
     Dates: start: 20150420, end: 20150422
  36. AMBROXOL HYDROCHLORIDE [Concomitant]
     Active Substance: AMBROXOL HYDROCHLORIDE
     Indication: PRODUCTIVE COUGH
     Route: 055
     Dates: start: 20150425, end: 20150427
  37. ALMAGATE [Concomitant]
     Active Substance: ALMAGATE
     Dosage: INDICATION: ACID SUPPRESSION
     Route: 048
     Dates: start: 20150427, end: 20150506
  38. ALBUMIN [Concomitant]
     Active Substance: ALBUMIN HUMAN
     Indication: HAEMOGLOBIN INCREASED
     Dosage: 20% HUMAN BLOOD ALBUMIN INJECTION
     Route: 042
     Dates: start: 20150424, end: 20150424
  39. ALBUMIN [Concomitant]
     Active Substance: ALBUMIN HUMAN
     Dosage: 20% HUMAN BLOOD ALBUMIN INJECTION
     Route: 042
     Dates: start: 20150422, end: 20150423
  40. ESOMEPRAZOLE MAGNESIUM. [Concomitant]
     Active Substance: ESOMEPRAZOLE MAGNESIUM
     Dosage: INDICATION: ACID SUPPRESSION
     Route: 048
     Dates: start: 20150427, end: 20150506
  41. TRASTUZUMAB [Suspect]
     Active Substance: TRASTUZUMAB
     Dosage: MAINTAINENCE DOSE (6 MG/KG)
     Route: 042
     Dates: start: 20150119, end: 20150330
  42. CAPECITABINE. [Suspect]
     Active Substance: CAPECITABINE
     Indication: HER-2 POSITIVE GASTRIC CANCER
     Dosage: DATE OF MOST RECENT DOSE PRIOR TO THE EVENT: 30/MAR/2015
     Route: 048
     Dates: start: 20141229, end: 20150330
  43. OXYCODONE HYDROCHLORIDE. [Concomitant]
     Active Substance: OXYCODONE HYDROCHLORIDE
     Dosage: INDICATION: ANALGESIC
     Route: 048
     Dates: start: 20141217
  44. THYMOPENTIN [Concomitant]
     Active Substance: THYMOPENTIN
     Dosage: INDICATION: ENHANCE IMMUNITY
     Route: 058
     Dates: start: 20150418, end: 20150418
  45. VITAMIN C [Concomitant]
     Active Substance: ASCORBIC ACID
     Dosage: INDICATION:ENHANCE IMMUNITY
     Route: 042
     Dates: start: 20150418, end: 20150419
  46. VITAMIN C [Concomitant]
     Active Substance: ASCORBIC ACID
     Dosage: POWDER INJECTION
     Route: 042
     Dates: start: 20150511, end: 20150515
  47. AMINO ACID [Concomitant]
     Indication: NUTRITIONAL SUPPLEMENTATION
     Route: 042
     Dates: start: 20150418, end: 20150419
  48. LANSOPRAZOLE. [Concomitant]
     Active Substance: LANSOPRAZOLE
     Dosage: INDICATION:ACID SUPPRESSION
     Route: 042
     Dates: start: 20150418, end: 20150427
  49. PLACENTA POLYPEPTIDE [Concomitant]
     Dosage: INDICATION:ENHANCE IMMUNITY
     Route: 042
     Dates: start: 20150418, end: 20150427
  50. LEVOFLOXACIN HYDROCHLORIDE [Concomitant]
     Active Substance: LEVOFLOXACIN
     Dosage: INDICATION:ANTI-MICROBIAL
     Route: 042
     Dates: start: 20150419, end: 20150427
  51. ALBUMIN [Concomitant]
     Active Substance: ALBUMIN HUMAN
     Dosage: 20% HUMAN BLOOD ALBUMIN INJECTION
     Route: 042
     Dates: start: 20150425, end: 20150425
  52. POTASSIUM CHLORIDE. [Concomitant]
     Active Substance: POTASSIUM CHLORIDE
     Route: 048
     Dates: start: 20150422, end: 20150422
  53. COMPOSITE POTASSIUM HYDROGEN PHOSPHATE [Concomitant]
     Dosage: INDICATION:TO MAINTAIN WATER AND ELECTROLYTE BALANCE
     Route: 042
     Dates: start: 20150418, end: 20150427
  54. COMPOSITE POTASSIUM HYDROGEN PHOSPHATE [Concomitant]
     Route: 042
     Dates: start: 20150420, end: 20150427
  55. LEVOCARNITINE. [Concomitant]
     Active Substance: LEVOCARNITINE
     Dosage: INDICATION:TO PROTECT THE MYOCARDIUM
     Route: 042
     Dates: start: 20150418, end: 20150419
  56. LANSOPRAZOLE. [Concomitant]
     Active Substance: LANSOPRAZOLE
     Route: 042
     Dates: start: 20150510, end: 20150512
  57. PLACENTA POLYPEPTIDE [Concomitant]
     Dosage: INDICATION:ENHANCE IMMUNITY
     Route: 042
     Dates: start: 20150511, end: 20150515
  58. POTASSIUM CHLORIDE. [Concomitant]
     Active Substance: POTASSIUM CHLORIDE
     Dosage: POTASSIUM SUPPLEMENT
     Route: 048
     Dates: start: 20150418, end: 20150420
  59. POTASSIUM CHLORIDE. [Concomitant]
     Active Substance: POTASSIUM CHLORIDE
     Route: 042
     Dates: start: 20150420, end: 20150425

REACTIONS (1)
  - Atrial septal defect acquired [Not Recovered/Not Resolved]

NARRATIVE: CASE EVENT DATE: 20150515
